FAERS Safety Report 18908112 (Version 2)
Quarter: 2021Q1

REPORT INFORMATION
  Report Type: Spontaneous
  Country: FR (occurrence: FR)
  Receive Date: 20210218
  Receipt Date: 20210304
  Transmission Date: 20210420
  Serious: Yes (Disabling)
  Sender: FDA-Public Use
  Company Number: FR-TEVA-2021-FR-1880768

PATIENT
  Age: 58 Year
  Sex: Male

DRUGS (2)
  1. AMLODIPINE [Suspect]
     Active Substance: AMLODIPINE BESYLATE
     Indication: RAYNAUD^S PHENOMENON
     Dosage: 1 DOSAGE FORMS DAILY;
     Route: 065
     Dates: start: 202003, end: 202102
  2. AMLODIPINE [Suspect]
     Active Substance: AMLODIPINE BESYLATE
     Indication: HYPERTENSION

REACTIONS (3)
  - Product use in unapproved indication [Unknown]
  - Mallet finger [Recovered/Resolved with Sequelae]
  - Mobility decreased [Unknown]

NARRATIVE: CASE EVENT DATE: 20210129
